FAERS Safety Report 17131110 (Version 1)
Quarter: 2019Q4

REPORT INFORMATION
  Report Type: Spontaneous
  Country: US (occurrence: US)
  Receive Date: 20191209
  Receipt Date: 20191209
  Transmission Date: 20200122
  Serious: No
  Sender: FDA-Public Use
  Company Number: US-009507513-1912USA002373

PATIENT
  Sex: Female

DRUGS (3)
  1. COZAAR [Suspect]
     Active Substance: LOSARTAN POTASSIUM
     Route: 048
  2. ZETIA [Suspect]
     Active Substance: EZETIMIBE
     Route: 048
  3. LOSARTAN. [Suspect]
     Active Substance: LOSARTAN

REACTIONS (1)
  - Adverse event [Unknown]
